FAERS Safety Report 22000355 (Version 1)
Quarter: 2023Q1

REPORT INFORMATION
  Report Type: Report from Study
  Country: IT (occurrence: IT)
  Receive Date: 20230216
  Receipt Date: 20230216
  Transmission Date: 20230417
  Serious: Yes (Life-Threatening, Other)
  Sender: FDA-Public Use
  Company Number: IT-INFECTO-10013

PATIENT
  Age: 49 Year
  Sex: Female
  Weight: 60 kg

DRUGS (4)
  1. LINEZOLID [Suspect]
     Active Substance: LINEZOLID
     Indication: Sepsis
     Dosage: UNK
     Route: 042
     Dates: start: 20230113, end: 20230114
  2. LINEZOLID [Suspect]
     Active Substance: LINEZOLID
     Indication: Bacteraemia
  3. FOSFOMYCIN SODIUM [Suspect]
     Active Substance: FOSFOMYCIN SODIUM
     Indication: Sepsis
     Dosage: UNK
     Route: 042
     Dates: start: 20230113, end: 20230114
  4. FOSFOMYCIN SODIUM [Suspect]
     Active Substance: FOSFOMYCIN SODIUM
     Indication: Bacteraemia

REACTIONS (1)
  - Acute hepatic failure [Recovered/Resolved]

NARRATIVE: CASE EVENT DATE: 20230114
